FAERS Safety Report 5832169-6 (Version None)
Quarter: 2008Q3

REPORT INFORMATION
  Report Type: 
  Country: None (occurrence: None)
  Receive Date: 20080731
  Receipt Date: 20080731
  Transmission Date: 20090109
  Serious: No
  Sender: FDA-Public Use
  Company Number: None

PATIENT
  Age: 42 Year
  Sex: Female
  Weight: 79.3795 kg

DRUGS (2)
  1. SINGULAIR [Suspect]
     Indication: MULTIPLE ALLERGIES
     Dosage: 10MG. 1X DAY PO
     Route: 048
     Dates: start: 20080401, end: 20080726
  2. SINGULAIR [Suspect]
     Indication: RHINITIS
     Dosage: 10MG. 1X DAY PO
     Route: 048
     Dates: start: 20080401, end: 20080726

REACTIONS (1)
  - WEIGHT INCREASED [None]
